FAERS Safety Report 12465909 (Version 8)
Quarter: 2016Q3

REPORT INFORMATION
  Report Type: Report from Study
  Country: IL (occurrence: IL)
  Receive Date: 20160614
  Receipt Date: 20160913
  Transmission Date: 20161109
  Serious: Yes (Life-Threatening, Hospitalization, Other)
  Sender: FDA-Public Use
  Company Number: IL-ABBVIE-16P-082-1647297-00

PATIENT
  Age: 74 Year
  Sex: Male

DRUGS (2)
  1. DUODOPA [Suspect]
     Active Substance: CARBIDOPA\LEVODOPA
     Route: 050
     Dates: start: 20160801
  2. DUODOPA [Suspect]
     Active Substance: CARBIDOPA\LEVODOPA
     Indication: PARKINSON^S DISEASE
     Dosage: TITRATION
     Route: 050
     Dates: start: 20160530, end: 20160606

REACTIONS (6)
  - Clostridial infection [Not Recovered/Not Resolved]
  - Abdominal tenderness [Not Recovered/Not Resolved]
  - Sepsis [Not Recovered/Not Resolved]
  - Dyspnoea [Unknown]
  - Hypotension [Not Recovered/Not Resolved]
  - Aspiration [Unknown]

NARRATIVE: CASE EVENT DATE: 2016
